FAERS Safety Report 9553119 (Version 2)
Quarter: 2013Q3

REPORT INFORMATION
  Report Type: Spontaneous
  Country: US (occurrence: US)
  Receive Date: 20130925
  Receipt Date: 20130925
  Transmission Date: 20140515
  Serious: Yes (Hospitalization)
  Sender: FDA-Public Use
  Company Number: US-BAYER-2013-115509

PATIENT
  Age: 34 Year
  Sex: Female
  Weight: 140.14 kg

DRUGS (13)
  1. OCELLA [Suspect]
  2. PONSTEL [Concomitant]
     Dosage: 250 MG, UNK
  3. CLINDAMYCIN [Concomitant]
     Dosage: 150 MG, UNK
  4. HYDROCODONE W/ACETAMINOPHEN [Concomitant]
     Dosage: 7.5/750 MG
  5. ZIANA [Concomitant]
     Dosage: 30 G, UNK
  6. DORYX [DOXYCYCLINE] [Concomitant]
     Dosage: 150 MG, UNK
  7. PRISTIQ [Concomitant]
     Dosage: 50 MG, UNK
  8. AZITHROMYCIN [Concomitant]
     Dosage: 250 MG, UNK
  9. ESGIC [Concomitant]
     Indication: PAIN
  10. CHERATUSSIN [AMMONIUM CHLORIDE,DEXTROMETHORPHAN HYDROBROMIDE,SODIU [Concomitant]
  11. TOPAMAX [Concomitant]
     Indication: MIGRAINE
  12. VICODIN [Concomitant]
     Indication: PAIN IN EXTREMITY
  13. MAXALT [Concomitant]
     Indication: BREAKTHROUGH PAIN

REACTIONS (5)
  - Deep vein thrombosis [None]
  - Pulmonary embolism [None]
  - Chest discomfort [None]
  - Respiratory tract congestion [None]
  - Dyspnoea [None]
